FAERS Safety Report 20989890 (Version 2)
Quarter: 2022Q2

REPORT INFORMATION
  Report Type: Spontaneous
  Country: US (occurrence: US)
  Receive Date: 20220621
  Receipt Date: 20220623
  Transmission Date: 20220720
  Serious: No
  Sender: FDA-Public Use
  Company Number: US-PURDUE PHARMA-USA-2022-0292974

PATIENT
  Sex: Female

DRUGS (6)
  1. OXYCODONE HYDROCHLORIDE [Suspect]
     Active Substance: OXYCODONE HYDROCHLORIDE
     Indication: Back pain
     Dosage: 10/325 MG, TID PRN
     Route: 048
     Dates: start: 20220406
  2. GABAPENTIN [Concomitant]
     Active Substance: GABAPENTIN
     Indication: Back pain
     Dosage: 300 MG, PRN
     Route: 048
  3. FLEXERIL                           /00428402/ [Concomitant]
     Indication: Back pain
     Dosage: 10 MG, PRN
     Route: 048
  4. ACETAMINOPHEN\OXYCODONE HYDROCHLORIDE\OXYCODONE TEREPHTHALATE [Concomitant]
     Active Substance: ACETAMINOPHEN\OXYCODONE HYDROCHLORIDE\OXYCODONE TEREPHTHALATE
     Indication: Back pain
     Dosage: 10 MG, PRN
     Route: 048
  5. IBUPROFEN [Concomitant]
     Active Substance: IBUPROFEN
     Indication: Abdominal pain upper
     Dosage: 800 MG, PRN
     Route: 048
  6. OMEPRAZOLE [Concomitant]
     Active Substance: OMEPRAZOLE
     Indication: Abdominal pain upper
     Dosage: 20 MG, PRN
     Route: 065

REACTIONS (3)
  - Feeling hot [Not Recovered/Not Resolved]
  - Drug ineffective [Not Recovered/Not Resolved]
  - Hyperhidrosis [Not Recovered/Not Resolved]

NARRATIVE: CASE EVENT DATE: 20220406
